FAERS Safety Report 5208210-0 (Version None)
Quarter: 2007Q1

REPORT INFORMATION
  Report Type: 
  Country: None (occurrence: None)
  Receive Date: 20070115
  Receipt Date: 20070109
  Transmission Date: 20070707
  Serious: Yes (Hospitalization, Other)
  Sender: FDA-Public Use
  Company Number: PHBS2006GB1907

PATIENT
  Age: 34 Year
  Sex: Female

DRUGS (4)
  1. AUGMENTIN '125' [Suspect]
     Indication: PROPHYLAXIS
     Route: 065
  2. DICLOFENAC SODIUM [Suspect]
     Indication: ANALGESIC THERAPY
     Route: 065
  3. ENOXAPARIN SODIUM [Suspect]
     Indication: DRUG USE FOR UNKNOWN INDICATION
     Route: 065
  4. GRANISETRON [Suspect]
     Indication: DRUG USE FOR UNKNOWN INDICATION
     Route: 065

REACTIONS (12)
  - ACUTE GENERALISED EXANTHEMATOUS PUSTULOSIS [None]
  - CAESAREAN SECTION [None]
  - DERMATITIS ALLERGIC [None]
  - DRUG EXPOSURE DURING PREGNANCY [None]
  - DRUG HYPERSENSITIVITY [None]
  - ERYTHEMA [None]
  - MALAISE [None]
  - PYREXIA [None]
  - RASH [None]
  - SKIN EXFOLIATION [None]
  - SKIN OEDEMA [None]
  - TACHYCARDIA [None]
